FAERS Safety Report 5144271-5 (Version None)
Quarter: 2006Q4

REPORT INFORMATION
  Report Type: 
  Country: None (occurrence: None)
  Receive Date: 20061102
  Receipt Date: 20061102
  Transmission Date: 20070319
  Serious: No
  Sender: FDA-Public Use
  Company Number: None

PATIENT
  Age: 55 Year
  Sex: Female
  Weight: 51.2565 kg

DRUGS (1)
  1. TEMAZEPAM [Suspect]
     Indication: INSOMNIA
     Dosage: 1 DAILY PO
     Route: 048
     Dates: start: 20060717, end: 20061030

REACTIONS (3)
  - BURNING SENSATION [None]
  - PAIN [None]
  - VAGINAL BURNING SENSATION [None]
